FAERS Safety Report 7795246-9 (Version None)
Quarter: 2011Q4

REPORT INFORMATION
  Report Type: 
  Country: None (occurrence: None)
  Receive Date: 20111004
  Receipt Date: 20110919
  Transmission Date: 20120403
  Serious: Yes (Other)
  Sender: FDA-Public Use
  Company Number: ES-GILEAD-2011-0044418

PATIENT
  Sex: Female

DRUGS (7)
  1. ATORVASTATIN [Concomitant]
     Indication: ISCHAEMIC CARDIOMYOPATHY
     Dosage: 80 MG, UNK
     Route: 048
  2. LANSOPRAZOLE [Suspect]
     Indication: PROPHYLAXIS AGAINST GASTROINTESTINAL ULCER
     Dosage: 30 MG, UNK
     Route: 048
  3. BISOPROLOL [Concomitant]
     Indication: ISCHAEMIC CARDIOMYOPATHY
     Dosage: 5 MG, UNK
     Route: 048
  4. RANOLAZINE [Suspect]
     Indication: ANGINA PECTORIS
     Dosage: 375 MG, BID
     Route: 048
     Dates: start: 20101026, end: 20110531
  5. EZETIMIBE [Suspect]
     Indication: ISCHAEMIC CARDIOMYOPATHY
     Dosage: 10 MG, UNK
     Route: 048
  6. ISOSORBIDE MONONITRATE [Concomitant]
     Indication: ISCHAEMIC CARDIOMYOPATHY
     Dosage: 50 MG, UNK
     Route: 048
  7. ASPIRIN [Concomitant]
     Indication: ISCHAEMIC CARDIOMYOPATHY
     Dosage: 100 MG, UNK
     Route: 048

REACTIONS (5)
  - DRY MOUTH [None]
  - DRY EYE [None]
  - VAGINAL EROSION [None]
  - DRY SKIN [None]
  - VULVOVAGINAL DRYNESS [None]
